FAERS Safety Report 16597299 (Version 2)
Quarter: 2020Q2

REPORT INFORMATION
  Report Type: Spontaneous
  Country: US (occurrence: US)
  Receive Date: 20190719
  Receipt Date: 20200624
  Transmission Date: 20200713
  Serious: No
  Sender: FDA-Public Use
  Company Number: US-TEVA-2019-US-1079634

PATIENT
  Sex: Female

DRUGS (9)
  1. BUPROPION EXTENDED RELEASE XL [Suspect]
     Active Substance: BUPROPION
     Indication: MAJOR DEPRESSION
     Dosage: 2 TIMES DAILY, 1 TAB TWICE DAILY 4PM AND MIDNIGHT
     Route: 065
     Dates: start: 20190617
  2. CYCLOBENZAPRINE. [Concomitant]
     Active Substance: CYCLOBENZAPRINE
     Dosage: 1 TAB ONCE DAILY 10:00PM
     Route: 065
  3. LATANOPROST. [Concomitant]
     Active Substance: LATANOPROST
     Dosage: 1DROP EACH EYE 10:00PM
     Route: 047
  4. LAMOTRIGINE. [Concomitant]
     Active Substance: LAMOTRIGINE
     Dosage: 1 TAB AT 4 PM AND 2 TABS AT MIDNIGHT
     Route: 065
  5. LAMOTRIGINE. [Concomitant]
     Active Substance: LAMOTRIGINE
     Dosage: 100/200
     Route: 065
  6. ZIPRASIDONE. [Concomitant]
     Active Substance: ZIPRASIDONE
     Dosage: TWICE DAILY 4:00PM AND MIDNIGHT
     Route: 065
  7. CALCIUM [Concomitant]
     Active Substance: CALCIUM
     Dosage: 1 TAB DAILY 4:00PM
     Route: 065
  8. BUPROPION EXTENDED RELEASE XL [Suspect]
     Active Substance: BUPROPION
     Dosage: 2 TIMES DAILY, 1 TAB TWICE DAILY 4PM AND MIDNIGHT
     Route: 065
  9. SYNTHROID [Concomitant]
     Active Substance: LEVOTHYROXINE SODIUM
     Dosage: 1 TAB DAILY 7:00AM
     Route: 065

REACTIONS (8)
  - Product substitution issue [Unknown]
  - Somnolence [Not Recovered/Not Resolved]
  - Inappropriate schedule of product administration [Unknown]
  - Fall [Not Recovered/Not Resolved]
  - Tremor [Not Recovered/Not Resolved]
  - Muscle spasms [Not Recovered/Not Resolved]
  - Muscular weakness [Not Recovered/Not Resolved]
  - Mood swings [Not Recovered/Not Resolved]
